FAERS Safety Report 15104074 (Version 1)
Quarter: 2018Q2

REPORT INFORMATION
  Report Type: Spontaneous
  Country: US (occurrence: US)
  Receive Date: 20180611
  Receipt Date: 20180611
  Transmission Date: 20180711
  Serious: Yes (Hospitalization, Other)
  Sender: FDA-Public Use
  Company Number: None

PATIENT
  Age: 82 Year
  Sex: Female

DRUGS (22)
  1. FLUTICASONE. [Concomitant]
     Active Substance: FLUTICASONE
  2. COREG [Concomitant]
     Active Substance: CARVEDILOL
  3. ALBUTEROL. [Concomitant]
     Active Substance: ALBUTEROL
  4. WELCHOL [Concomitant]
     Active Substance: COLESEVELAM HYDROCHLORIDE
  5. KLONOPIN [Concomitant]
     Active Substance: CLONAZEPAM
  6. PRILOSEC [Concomitant]
     Active Substance: OMEPRAZOLE MAGNESIUM
  7. CHLORTHALID [Concomitant]
  8. BUTALBITAL [Concomitant]
     Active Substance: BUTALBITAL
  9. BENAZEPRIL [Concomitant]
     Active Substance: BENAZEPRIL HYDROCHLORIDE
  10. OCTREOTIDE. [Suspect]
     Active Substance: OCTREOTIDE
     Indication: BLOOD GROWTH HORMONE INCREASED
     Dates: start: 20131216
  11. PROAIR HFA [Concomitant]
     Active Substance: ALBUTEROL SULFATE
  12. TYLENOL [Concomitant]
     Active Substance: ACETAMINOPHEN
  13. MAG OXIDE [Concomitant]
     Active Substance: MAGNESIUM OXIDE
  14. MECLIZINE [Concomitant]
     Active Substance: MECLIZINE HYDROCHLORIDE
  15. CYANOCOBALAM [Concomitant]
     Active Substance: CYANOCOBALAMIN
  16. SINGULAIR [Concomitant]
     Active Substance: MONTELUKAST SODIUM
  17. OXYBUTYNIN. [Concomitant]
     Active Substance: OXYBUTYNIN CHLORIDE
  18. IPRATROPIUM [Concomitant]
     Active Substance: IPRATROPIUM
  19. CHOLESTYRAM [Concomitant]
     Active Substance: CHOLESTYRAMINE
  20. CARDIZEM [Concomitant]
     Active Substance: DILTIAZEM HYDROCHLORIDE
  21. DILTIAZEM. [Concomitant]
     Active Substance: DILTIAZEM
  22. ZANTAC [Concomitant]
     Active Substance: RANITIDINE HYDROCHLORIDE

REACTIONS (1)
  - Drug dose omission [None]

NARRATIVE: CASE EVENT DATE: 20180519
